FAERS Safety Report 9133313 (Version 2)
Quarter: 2013Q1

REPORT INFORMATION
  Report Type: Spontaneous
  Country: BR (occurrence: BR)
  Receive Date: 20130301
  Receipt Date: 20130311
  Transmission Date: 20140127
  Serious: Yes (Hospitalization)
  Sender: FDA-Public Use
  Company Number: BR-ABBOTT-13P-020-1054835-00

PATIENT
  Sex: Female
  Weight: 25 kg

DRUGS (1)
  1. LUPRON DEPOT-PED [Suspect]
     Indication: HYPERPITUITARISM
     Route: 030
     Dates: start: 20120530

REACTIONS (4)
  - Vaginal haemorrhage [Recovered/Resolved]
  - Injection site pain [Recovered/Resolved]
  - Subcutaneous abscess [Recovering/Resolving]
  - Cellulitis [Recovered/Resolved]
